FAERS Safety Report 4752340-4 (Version None)
Quarter: 2005Q3

REPORT INFORMATION
  Report Type: 
  Country: None (occurrence: None)
  Receive Date: 20050825
  Receipt Date: 20050812
  Transmission Date: 20060218
  Serious: Yes (Hospitalization)
  Sender: FDA-Public Use
  Company Number: FR-GLAXOSMITHKLINE-B0391122A

PATIENT
  Sex: Male
  Weight: 3.7 kg

DRUGS (5)
  1. PAROXETINE HCL [Suspect]
     Indication: DRUG EXPOSURE DURING PREGNANCY
     Dosage: 20MG PER DAY
     Dates: start: 20050127, end: 20050418
  2. VICTAN [Suspect]
     Indication: DRUG EXPOSURE DURING PREGNANCY
     Dosage: .5MG PER DAY
     Dates: start: 20050127, end: 20050418
  3. TERCIAN [Suspect]
     Indication: DRUG EXPOSURE DURING PREGNANCY
     Dosage: 4MG AT NIGHT
     Dates: start: 20050324, end: 20050418
  4. PROZAC [Concomitant]
     Dosage: 20MG PER DAY
     Dates: start: 20041104, end: 20050127
  5. NOCTRAN [Concomitant]
     Dosage: .25TAB PER DAY
     Dates: start: 20041104, end: 20050127

REACTIONS (4)
  - DRUG EXPOSURE DURING PREGNANCY [None]
  - FEEDING DISORDER NEONATAL [None]
  - POLYHYDRAMNIOS [None]
  - POOR SUCKING REFLEX [None]
